FAERS Safety Report 6636227-8 (Version None)
Quarter: 2010Q1

REPORT INFORMATION
  Report Type: 
  Country: None (occurrence: None)
  Receive Date: 20100316
  Receipt Date: 20100303
  Transmission Date: 20100710
  Serious: Yes (Other)
  Sender: FDA-Public Use
  Company Number: JP-PFIZER INC-2010028602

PATIENT
  Age: 71 Year
  Sex: Female

DRUGS (10)
  1. CHAMPIX [Suspect]
     Indication: NICOTINE DEPENDENCE
     Dosage: 1MG/DAY
     Route: 048
  2. ALDACTONE [Concomitant]
     Route: 048
  3. MICARDIS [Concomitant]
     Route: 048
  4. DOGMATYL [Concomitant]
  5. LAC B [Concomitant]
     Route: 048
  6. CHLORPHENIRAMINE MALEATE [Concomitant]
  7. CARDENALIN [Concomitant]
     Route: 048
  8. MARZULENE S [Concomitant]
     Route: 048
  9. DIAZEPAM [Concomitant]
     Route: 048
  10. METHYLEPHEDRINE [Concomitant]

REACTIONS (1)
  - HEPATIC FUNCTION ABNORMAL [None]
